FAERS Safety Report 13511808 (Version 1)
Quarter: 2017Q2

REPORT INFORMATION
  Report Type: Report from Study
  Country: US (occurrence: US)
  Receive Date: 20170504
  Receipt Date: 20170504
  Transmission Date: 20170830
  Serious: No
  Sender: FDA-Public Use
  Company Number: PHEH2017US013077

PATIENT
  Sex: Female

DRUGS (2)
  1. MYFORTIC [Suspect]
     Active Substance: MYCOPHENOLATE SODIUM
     Indication: PRODUCT USED FOR UNKNOWN INDICATION
     Dosage: 360 MG/KG, BID
     Route: 048
  2. NEORAL [Suspect]
     Active Substance: CYCLOSPORINE
     Indication: PRODUCT USED FOR UNKNOWN INDICATION
     Dosage: 25 MG/KG, BID
     Route: 048

REACTIONS (8)
  - Blood pressure increased [Unknown]
  - Musculoskeletal stiffness [Unknown]
  - Sensory loss [Unknown]
  - Dizziness [Unknown]
  - Limb discomfort [Unknown]
  - Feeling abnormal [Unknown]
  - Gingival disorder [Unknown]
  - Pain in extremity [Unknown]
